FAERS Safety Report 22290595 (Version 1)
Quarter: 2023Q2

REPORT INFORMATION
  Report Type: Spontaneous
  Country: US (occurrence: US)
  Receive Date: 20230505
  Receipt Date: 20230505
  Transmission Date: 20230722
  Serious: No
  Sender: FDA-Public Use
  Company Number: US-GALDERMA-US2023006114

PATIENT

DRUGS (3)
  1. PROACTIV MD ADAPALENE ACNE TREATMENT [Suspect]
     Active Substance: ADAPALENE
     Indication: Acne
     Dosage: 1 DOSAGE FORM, EVERY COUPLE OF DAYS, ONLY ON HEAVY SPOTS, A LITTLE BIT ON EACH SPOT ONLY
     Route: 061
     Dates: start: 202211
  2. Proactiv MD Ultra Gentle Cleanser [Concomitant]
     Indication: Acne
     Dosage: 1 DOSAGE FORM, BID, ALL OVER FACE, MORNING AND NIGHT, QUARTER SIZE
     Route: 061
     Dates: start: 202211
  3. Proactiv MD Ultra Hydrating Moisturizer [Concomitant]
     Indication: Acne
     Dosage: 1 DOSAGE FORM, BID, ALL OVER FACE, MORNING AND NIGHT, QUARTER SIZE
     Route: 061
     Dates: start: 202212

REACTIONS (3)
  - Drug ineffective [Unknown]
  - Inappropriate schedule of product administration [Recovered/Resolved]
  - Underdose [Recovered/Resolved]
